FAERS Safety Report 15697155 (Version 1)
Quarter: 2018Q4

REPORT INFORMATION
  Report Type: Spontaneous
  Country: US (occurrence: US)
  Receive Date: 20181206
  Receipt Date: 20181206
  Transmission Date: 20190205
  Serious: No
  Sender: FDA-Public Use
  Company Number: US-PFIZER INC-2018497353

PATIENT
  Sex: Female

DRUGS (2)
  1. ADVIL [Suspect]
     Active Substance: IBUPROFEN
     Dosage: 600 MG, UNK
     Route: 048
  2. BENGAY ARTHRITIS PAIN RELIEVING [Suspect]
     Active Substance: MENTHOL\METHYL SALICYLATE
     Dosage: UNK

REACTIONS (4)
  - Dysgeusia [Unknown]
  - Poor quality product administered [Unknown]
  - Product contamination [Unknown]
  - Accidental exposure to product [Unknown]
